FAERS Safety Report 11712137 (Version 1)
Quarter: 2015Q4

REPORT INFORMATION
  Report Type: Spontaneous
  Country: US (occurrence: US)
  Receive Date: 20151104
  Receipt Date: 20151104
  Transmission Date: 20160304
  Serious: No
  Sender: FDA-Public Use
  Company Number: US-ELI_LILLY_AND_COMPANY-US201102007419

PATIENT
  Age: 68 Year
  Sex: Female

DRUGS (1)
  1. FORTEO [Suspect]
     Active Substance: TERIPARATIDE
     Indication: OSTEOPOROSIS
     Dosage: 20 UG, DAILY (1/D)
     Dates: start: 201012

REACTIONS (16)
  - Pain [Unknown]
  - Gait disturbance [Unknown]
  - Gait disturbance [Unknown]
  - Pain [Recovered/Resolved]
  - Fall [Recovered/Resolved]
  - Dizziness [Not Recovered/Not Resolved]
  - Balance disorder [Unknown]
  - Musculoskeletal discomfort [Unknown]
  - Contusion [Unknown]
  - Joint injury [Unknown]
  - Fall [Recovered/Resolved]
  - Balance disorder [Unknown]
  - Pain in extremity [Unknown]
  - Musculoskeletal pain [Recovered/Resolved]
  - Nerve compression [Unknown]
  - Arthralgia [Recovered/Resolved]

NARRATIVE: CASE EVENT DATE: 20110208
